FAERS Safety Report 4489308-1 (Version None)
Quarter: 2004Q4

REPORT INFORMATION
  Report Type: 
  Country: None (occurrence: None)
  Receive Date: 20041026
  Receipt Date: 20041020
  Transmission Date: 20050328
  Serious: Yes (Disabling)
  Sender: FDA-Public Use
  Company Number: FRWYE129021OCT04

PATIENT
  Age: 50 Year
  Sex: Female

DRUGS (3)
  1. RAPAMUNE [Suspect]
     Indication: PROPHYLAXIS AGAINST TRANSPLANT REJECTION
     Dosage: ORAL
     Route: 048
     Dates: start: 20030101, end: 20040801
  2. PROGRAF [Suspect]
     Indication: PROPHYLAXIS AGAINST TRANSPLANT REJECTION
     Dosage: ORAL
     Route: 048
     Dates: start: 20030101
  3. CORTICOSTEROID NOS              (CORTICOSTEROID NOS) [Concomitant]

REACTIONS (5)
  - ASTHENIA [None]
  - CYANOSIS [None]
  - OEDEMA PERIPHERAL [None]
  - PROTEINURIA [None]
  - RETINAL DETACHMENT [None]
